FAERS Safety Report 9192123 (Version 3)
Quarter: 2013Q2

REPORT INFORMATION
  Report Type: Spontaneous
  Country: US (occurrence: US)
  Receive Date: 20130327
  Receipt Date: 20130628
  Transmission Date: 20140414
  Serious: No
  Sender: FDA-Public Use
  Company Number: US-009507513-1303USA011915

PATIENT
  Sex: Female

DRUGS (6)
  1. VICTRELIS [Suspect]
     Indication: CHRONIC HEPATITIS C
     Dosage: UNK
     Route: 048
  2. REBETOL [Suspect]
     Indication: CHRONIC HEPATITIS C
     Dosage: 1000MG DIVIDED DOSE, QD
     Route: 048
     Dates: start: 20130113
  3. REBETOL [Suspect]
     Dosage: 600 MG DIVIDED DOSE , QD
     Route: 048
     Dates: start: 20130113
  4. PEGASYS [Suspect]
     Indication: CHRONIC HEPATITIS C
     Dosage: 180 MICROGRAM, QW
     Route: 058
     Dates: start: 20130113
  5. PEGASYS [Suspect]
     Dosage: 90 MICROGRAM, QW
     Route: 058
     Dates: start: 20130113
  6. PEGASYS [Suspect]
     Dosage: 45 MICROGRAM, QW
     Route: 058

REACTIONS (12)
  - Full blood count decreased [Unknown]
  - Underweight [Unknown]
  - Pain [Unknown]
  - White blood cell count decreased [Unknown]
  - Headache [Unknown]
  - Myalgia [Unknown]
  - Decreased appetite [Unknown]
  - Fatigue [Unknown]
  - Nausea [Unknown]
  - Vomiting [Unknown]
  - Fatigue [Unknown]
  - Arthralgia [Unknown]
